FAERS Safety Report 9429039 (Version 2)
Quarter: 2013Q3

REPORT INFORMATION
  Report Type: Spontaneous
  Country: FR (occurrence: FR)
  Receive Date: 20130730
  Receipt Date: 20130812
  Transmission Date: 20140515
  Serious: Yes (Hospitalization)
  Sender: FDA-Public Use
  Company Number: FR-PFIZER INC-2013216492

PATIENT
  Age: 81 Year
  Sex: Female
  Weight: 100 kg

DRUGS (11)
  1. CORDARONE X [Suspect]
     Indication: ATRIAL FIBRILLATION
     Dosage: 400 MG, DAILY (IN THE MORNING)
     Route: 048
  2. TAHOR [Suspect]
     Dosage: 40 MG, DAILY (IN THE EVENING)
     Route: 048
  3. SINTROM [Suspect]
     Indication: ATRIAL FIBRILLATION
     Dosage: 4 MG, 1X/DAY (ADJUSTED TO THE INR LEVEL)
     Dates: start: 20130304, end: 20130308
  4. OFLOCET [Suspect]
     Indication: URINARY TRACT INFECTION
     Dosage: 200 MG, 1X/DAY (IN THE MORNING)
     Route: 048
     Dates: start: 20130304
  5. LEVOTHYROX [Suspect]
     Dosage: 100 UG, IN THE MORNING, ALTERNATE DAY
     Route: 048
  6. LEVOTHYROX [Suspect]
     Dosage: 125 UG, ALTERNATE DAY (IN THE MORNING ON MONDAYS, WEDNESDAYS, FRIDAYS AND SUNDAYS)
     Route: 048
  7. CALCIPARIN [Concomitant]
     Dosage: 12500 IU, TWICE DAILY (IN THE MORNING AND IN THE EVENING)
     Dates: start: 20130302, end: 20130308
  8. LASILIX [Concomitant]
     Dosage: 40 MG, 1X/DAY (IN THE MORNING)
  9. MONO-TILDIEM - SLOW RELEASE [Concomitant]
     Dosage: 300 MG, 1X/DAY (IN THE MORNING)
  10. LANTUS [Concomitant]
     Dosage: 10 IU, 1X/DAY (IN THE MORNING)
  11. DABIGATRAN [Concomitant]

REACTIONS (3)
  - International normalised ratio increased [Recovered/Resolved]
  - Blood creatinine increased [Unknown]
  - Creatinine renal clearance decreased [Unknown]
